FAERS Safety Report 4716292-5 (Version None)
Quarter: 2005Q2

REPORT INFORMATION
  Report Type: 
  Country: None (occurrence: None)
  Receive Date: 20050630
  Receipt Date: 20041115
  Transmission Date: 20051028
  Serious: Yes (Hospitalization)
  Sender: FDA-Public Use
  Company Number: US_0411108151

PATIENT
  Age: 50 Year
  Sex: Female
  Weight: 75 kg

DRUGS (2)
  1. HUMALOG MIX 75/25 [Suspect]
     Dosage: 70 U DAY
     Dates: start: 19990101
  2. SYNTHROID [Concomitant]

REACTIONS (8)
  - DIFFICULTY IN WALKING [None]
  - DYSPNOEA [None]
  - HYPOTHYROIDISM [None]
  - NASOPHARYNGITIS [None]
  - PNEUMONIA PRIMARY ATYPICAL [None]
  - SINUSITIS [None]
  - TUMOUR EXCISION [None]
  - WEIGHT INCREASED [None]
